FAERS Safety Report 17849275 (Version 1)
Quarter: 2020Q2

REPORT INFORMATION
  Report Type: Spontaneous
  Country: US (occurrence: US)
  Receive Date: 20200602
  Receipt Date: 20200602
  Transmission Date: 20200714
  Serious: No
  Sender: FDA-Public Use
  Company Number: US-ALKERMES INC.-ALK-2020-002215

PATIENT
  Age: 51 Year
  Sex: Male

DRUGS (1)
  1. VIVITROL [Suspect]
     Active Substance: NALTREXONE
     Indication: ALCOHOLISM
     Dosage: 380 MILLIGRAM, QMO
     Route: 030
     Dates: start: 20200430

REACTIONS (2)
  - Dysphonia [Not Recovered/Not Resolved]
  - Seasonal allergy [Not Recovered/Not Resolved]

NARRATIVE: CASE EVENT DATE: 20200529
